FAERS Safety Report 4524084-5 (Version None)
Quarter: 2004Q4

REPORT INFORMATION
  Report Type: 
  Country: None (occurrence: None)
  Receive Date: 20041209
  Receipt Date: 20041026
  Transmission Date: 20050328
  Serious: Yes (Other)
  Sender: FDA-Public Use
  Company Number: 2004240614DE

PATIENT
  Age: 52 Year
  Sex: Female
  Weight: 72 kg

DRUGS (1)
  1. BEXTRA [Suspect]
     Indication: PERIOSTITIS
     Dosage: 10 MG (10 MG, 1 IN 1 D), ORAL
     Route: 048
     Dates: start: 20040811, end: 20040821

REACTIONS (3)
  - GENERALISED OEDEMA [None]
  - VAGINAL HAEMORRHAGE [None]
  - WEIGHT INCREASED [None]
